FAERS Safety Report 25475319 (Version 1)
Quarter: 2025Q2

REPORT INFORMATION
  Report Type: Spontaneous
  Country: PY (occurrence: PY)
  Receive Date: 20250624
  Receipt Date: 20250624
  Transmission Date: 20250716
  Serious: Yes (Hospitalization, Other)
  Sender: BIOMARIN
  Company Number: PY-SA-2025SA176012

PATIENT

DRUGS (1)
  1. LARONIDASE [Suspect]
     Active Substance: LARONIDASE
     Indication: Mucopolysaccharidosis I
     Dosage: 8.7 MG/3 V QW
     Route: 042

REACTIONS (1)
  - Pneumonia influenzal [Recovering/Resolving]

NARRATIVE: CASE EVENT DATE: 20250617
